FAERS Safety Report 7683987-3 (Version None)
Quarter: 2011Q3

REPORT INFORMATION
  Report Type: 
  Country: None (occurrence: None)
  Receive Date: 20110815
  Receipt Date: 20110803
  Transmission Date: 20111222
  Serious: Yes (Other)
  Sender: FDA-Public Use
  Company Number: CA-JNJFOC-20110804764

PATIENT
  Age: 49 Year
  Sex: Male
  Weight: 92.53 kg

DRUGS (2)
  1. ATACAND [Concomitant]
     Indication: HYPERTENSION
     Route: 065
  2. NICOTINE [Suspect]
     Indication: SMOKING CESSATION THERAPY
     Route: 048
     Dates: start: 20100801, end: 20110730

REACTIONS (4)
  - OVERDOSE [None]
  - DRUG ABUSE [None]
  - DIZZINESS [None]
  - INTENTIONAL DRUG MISUSE [None]
